FAERS Safety Report 23650627 (Version 1)
Quarter: 2024Q1

REPORT INFORMATION
  Report Type: Spontaneous
  Country: US (occurrence: None)
  Receive Date: 20240320
  Receipt Date: 20240320
  Transmission Date: 20240410
  Serious: No
  Sender: FDA-Public Use
  Company Number: US-ROCHE-3394803

PATIENT
  Age: 74 Year
  Sex: Female
  Weight: 71.7 kg

DRUGS (1)
  1. VABYSMO [Suspect]
     Active Substance: FARICIMAB\FARICIMAB-SVOA
     Indication: Age-related macular degeneration
     Dosage: ON 01/JUN/2023, RECEIVED THE LAST DOSE OF VABYSMO INJECTION.
     Route: 065
     Dates: start: 20221209, end: 20221209

REACTIONS (2)
  - Idiopathic orbital inflammation [Recovered/Resolved]
  - Inflammation [Recovered/Resolved]

NARRATIVE: CASE EVENT DATE: 20221209
